FAERS Safety Report 5972531-4 (Version None)
Quarter: 2008Q4

REPORT INFORMATION
  Report Type: 
  Country: None (occurrence: None)
  Receive Date: 20081201
  Receipt Date: 20081117
  Transmission Date: 20090506
  Serious: Yes (Other)
  Sender: FDA-Public Use
  Company Number: B0546625A

PATIENT
  Age: 39 Year
  Sex: Female

DRUGS (11)
  1. EPIVIR [Suspect]
     Indication: HIV INFECTION
     Dosage: 2TAB PER DAY
     Route: 048
     Dates: start: 20031007
  2. ZIDOVUDINE [Suspect]
     Indication: HIV INFECTION
     Route: 048
     Dates: start: 20020305, end: 20040101
  3. VIRAMUNE [Suspect]
     Indication: HIV INFECTION
     Dosage: 2TAB PER DAY
     Route: 048
     Dates: start: 19990602
  4. STAVUDINE [Suspect]
     Indication: HIV INFECTION
     Route: 048
     Dates: start: 19970101, end: 20020305
  5. VIREAD [Concomitant]
     Route: 065
  6. PEGASYS [Concomitant]
     Route: 065
  7. COPEGUS [Concomitant]
     Route: 065
  8. LEVOTHYROX [Concomitant]
     Route: 065
  9. NICOBION [Concomitant]
     Route: 065
  10. DIFFU K [Concomitant]
     Route: 065
  11. NEORECORMON [Concomitant]
     Dosage: 30000IU EVERY TWO WEEKS
     Route: 065
     Dates: start: 20081013

REACTIONS (2)
  - HYPOACUSIS [None]
  - OTOTOXICITY [None]
